FAERS Safety Report 4778751-9 (Version None)
Quarter: 2005Q3

REPORT INFORMATION
  Report Type: 
  Country: None (occurrence: None)
  Receive Date: 20050922
  Receipt Date: 20050914
  Transmission Date: 20060218
  Serious: Yes (Hospitalization)
  Sender: FDA-Public Use
  Company Number: 2005127967

PATIENT
  Age: 63 Year
  Sex: Male
  Weight: 97 kg

DRUGS (1)
  1. GENOTROPIN [Suspect]
     Indication: HYPOPITUITARISM
     Dosage: 0.3 MG (0.3 MG, QD), SUBCUTANEOUS
     Route: 058
     Dates: start: 20040914, end: 20050821

REACTIONS (1)
  - PROSTATE CANCER [None]
